FAERS Safety Report 20212035 (Version 2)
Quarter: 2022Q4

REPORT INFORMATION
  Report Type: Report from Study
  Country: US (occurrence: US)
  Receive Date: 20211221
  Receipt Date: 20221230
  Transmission Date: 20230113
  Serious: No
  Sender: FDA-Public Use
  Company Number: US-ACORDA-ACO_170935_2021

PATIENT
  Sex: Male

DRUGS (2)
  1. INBRIJA [Suspect]
     Active Substance: LEVODOPA
     Indication: Parkinson^s disease
     Dosage: 84 MILLIGRAM, PRN, DO NOT EXCEED DOSES IN 1 DAY
     Dates: start: 20210319
  2. INBRIJA [Suspect]
     Active Substance: LEVODOPA
     Indication: On and off phenomenon

REACTIONS (4)
  - Parkinson^s disease [Not Recovered/Not Resolved]
  - Therapy cessation [Unknown]
  - Parkinson^s disease [Not Recovered/Not Resolved]
  - Therapy cessation [Unknown]
